FAERS Safety Report 5363286-5 (Version None)
Quarter: 2007Q2

REPORT INFORMATION
  Report Type: 
  Country: None (occurrence: None)
  Receive Date: 20070530
  Receipt Date: 20070104
  Transmission Date: 20071010
  Serious: No
  Sender: FDA-Public Use
  Company Number: 2007PV027829

PATIENT
  Age: 70 Year
  Sex: Female
  Weight: 158.759 kg

DRUGS (3)
  1. BYETTA [Suspect]
     Indication: DIABETES MELLITUS NON-INSULIN-DEPENDENT
     Dosage: 5 MCG;BID;SC
     Route: 058
     Dates: start: 20061201
  2. NOVOLIN N [Concomitant]
  3. NOVOLIN R [Concomitant]

REACTIONS (2)
  - BLOOD GLUCOSE INCREASED [None]
  - DECREASED APPETITE [None]
